FAERS Safety Report 16254822 (Version 3)
Quarter: 2019Q3

REPORT INFORMATION
  Report Type: Report from Study
  Country: US (occurrence: US)
  Receive Date: 20190430
  Receipt Date: 20190923
  Transmission Date: 20191004
  Serious: Yes (Death, Hospitalization, Other)
  Sender: FDA-Public Use
  Company Number: US-SA-2018SA039391

PATIENT
  Age: 46 Year
  Sex: Female

DRUGS (1)
  1. ALEMTUZUMAB [Suspect]
     Active Substance: ALEMTUZUMAB
     Indication: MULTIPLE SCLEROSIS
     Dosage: 12 MG,QD
     Route: 041
     Dates: start: 20160412, end: 20160416

REACTIONS (20)
  - Cardiogenic shock [Fatal]
  - Acute respiratory failure [Fatal]
  - Product use issue [Unknown]
  - Cardio-respiratory arrest [Fatal]
  - Acute left ventricular failure [Unknown]
  - Cholelithiasis [Unknown]
  - Acute kidney injury [Fatal]
  - Pneumonia [Unknown]
  - Brain injury [Unknown]
  - Transaminases increased [Fatal]
  - Encephalopathy [Unknown]
  - Arterial perforation [Not Recovered/Not Resolved]
  - Malaise [Unknown]
  - Cardiac failure [Fatal]
  - Bradycardia [Fatal]
  - Endotracheal intubation [Unknown]
  - Mitral valve repair [Unknown]
  - Hyperkalaemia [Fatal]
  - Renal failure [Fatal]
  - Septic shock [Fatal]

NARRATIVE: CASE EVENT DATE: 20180124
